FAERS Safety Report 5234411-1 (Version None)
Quarter: 2007Q1

REPORT INFORMATION
  Report Type: 
  Country: None (occurrence: None)
  Receive Date: 20070209
  Receipt Date: 20070201
  Transmission Date: 20070707
  Serious: Yes (Hospitalization)
  Sender: FDA-Public Use
  Company Number: GB-ROCHE-481625

PATIENT
  Age: 72 Year
  Sex: Female
  Weight: 101.6 kg

DRUGS (2)
  1. XENICAL [Suspect]
     Indication: OBESITY
     Route: 048
     Dates: start: 20050718, end: 20061215
  2. XENICAL [Suspect]
     Route: 048
     Dates: start: 20070115

REACTIONS (1)
  - DYSPEPSIA [None]
